FAERS Safety Report 8974210 (Version 1)
Quarter: 2012Q4

REPORT INFORMATION
  Report Type: Spontaneous
  Country: JP (occurrence: None)
  Receive Date: 20121213
  Receipt Date: 20121213
  Transmission Date: 20130627
  Serious: Yes (Hospitalization, Disabling)
  Sender: FDA-Public Use
  Company Number: 2009JP007232

PATIENT
  Age: 28 Year
  Sex: Female
  Weight: 45.72 kg

DRUGS (42)
  1. TACROLIMUS [Suspect]
     Indication: LUPUS NEPHRITIS
     Route: 048
     Dates: start: 20091029, end: 20110815
  2. TACROLIMUS [Suspect]
     Indication: LUPUS NEPHRITIS
     Route: 048
     Dates: start: 20090327, end: 20090402
  3. TACROLIMUS [Suspect]
     Indication: LUPUS NEPHRITIS
     Route: 048
     Dates: start: 20091020, end: 20091028
  4. PREDNISOLONE (PREDNISOLONE) [Suspect]
     Route: 048
     Dates: end: 20090401
  5. PREDNISOLONE (PREDNISOLONE) [Suspect]
     Route: 048
     Dates: start: 20090402, end: 20090416
  6. PREDNISOLONE (PREDNISOLONE) [Suspect]
     Route: 048
     Dates: start: 20090417, end: 20090528
  7. PREDNISOLONE (PREDNISOLONE) [Suspect]
     Route: 048
     Dates: start: 20090529, end: 20090625
  8. PREDNISOLONE (PREDNISOLONE) [Suspect]
     Route: 048
     Dates: start: 20090626, end: 20090709
  9. PREDNISOLONE (PREDNISOLONE) [Suspect]
     Route: 048
     Dates: start: 20090710, end: 20090820
  10. PREDNISOLONE (PREDNISOLONE) [Suspect]
     Route: 048
     Dates: start: 20090821, end: 20090924
  11. PREDNISOLONE (PREDNISOLONE) [Suspect]
     Route: 048
     Dates: start: 20090925, end: 20091027
  12. PREDNISOLONE (PREDNISOLONE) [Suspect]
     Route: 048
     Dates: start: 20091028, end: 20091126
  13. PREDNISOLONE (PREDNISOLONE) [Suspect]
     Route: 048
     Dates: start: 20091127, end: 20091225
  14. PREDNISOLONE (PREDNISOLONE) [Suspect]
     Route: 048
     Dates: start: 20091226, end: 20100107
  15. PREDNISOLONE (PREDNISOLONE) [Suspect]
     Route: 048
     Dates: start: 20100108, end: 20100428
  16. PREDNISOLONE (PREDNISOLONE) [Suspect]
     Route: 048
     Dates: start: 20100429, end: 20100513
  17. PREDNISOLONE (PREDNISOLONE) [Suspect]
     Route: 048
     Dates: start: 20100514, end: 20100610
  18. PREDNISOLONE (PREDNISOLONE) [Suspect]
     Route: 048
     Dates: start: 20100611, end: 20100708
  19. PREDNISOLONE (PREDNISOLONE) [Suspect]
     Route: 048
     Dates: start: 20100709, end: 20100729
  20. PREDNISOLONE (PREDNISOLONE) [Suspect]
     Route: 048
     Dates: start: 20100730, end: 20110324
  21. PREDNISOLONE (PREDNISOLONE) [Suspect]
     Route: 048
     Dates: start: 20110325, end: 20110421
  22. PREDNISOLONE (PREDNISOLONE) [Suspect]
     Route: 048
     Dates: start: 20110422, end: 20110531
  23. PREDNISOLONE (PREDNISOLONE) [Suspect]
     Route: 048
     Dates: start: 20110601, end: 20110807
  24. PREDNISOLONE (PREDNISOLONE) [Suspect]
     Route: 048
     Dates: start: 20110811
  25. SOLU MEDROL [Suspect]
  26. BAYASPIRIN (ACETYLSALICYLIC ACID) ENTERIC TABLET [Concomitant]
  27. ASPARA-CA (ASPARTATE CALCIUM) TABLET [Concomitant]
  28. SLOW-FE (FERROUS SULFATE) TABLET [Concomitant]
  29. BONALON (ALENDRONATE SODIUM) TABLET [Concomitant]
  30. BLOSTAR M (FAMOTIDINE) TABLET [Concomitant]
  31. ITRIZOLE (ITRACONAZOLE) SOLUTION (ORAL USE) [Concomitant]
  32. HYALEIN (HYALURONATE SODIUM) EYE DROP [Concomitant]
  33. METHYCOBAL (MECOBALAMIN) TABLET [Concomitant]
  34. BACTRAMIN (SULFAMETHOXAZOLE, TRIMETHOPRIM) [Concomitant]
  35. FUNGIZONE (AMPHOTERICIN B) SYRUP [Concomitant]
  36. LORFENAMIN (LOXOPROFEN SODIUM) TABLET [Concomitant]
  37. MUCOSTA (REBAMIPIDE) TABLET [Concomitant]
  38. METHYLPREDNISOLONE   /00049602/ (METHYLPREDNISOLONE SODIUM SUCCINATE) INJECTION [Concomitant]
  39. PREDONINE   /00016203/ (PREDNISOLONE SODIUM SUCCINATE) INJECTION [Concomitant]
  40. BREDININ (MIZORIBINE) TABLET [Concomitant]
  41. DEPAS (ETIZOLAM) PER ORAL NOS [Concomitant]
  42. ENDOXAN   /00021101/ (CYCLOPHOSPHAMIDE) INJECTION [Concomitant]

REACTIONS (3)
  - Intracranial hypotension [None]
  - Pruritus [None]
  - Osteonecrosis [None]
